FAERS Safety Report 17111907 (Version 1)
Quarter: 2019Q4

REPORT INFORMATION
  Report Type: Spontaneous
  Country: US (occurrence: US)
  Receive Date: 20191204
  Receipt Date: 20191204
  Transmission Date: 20200122
  Serious: Yes (Other)
  Sender: FDA-Public Use
  Company Number: US-SANOFI-AVENTIS-2011SA014050

PATIENT
  Age: 64 Year
  Sex: Male

DRUGS (5)
  1. APIDRA [Suspect]
     Active Substance: INSULIN GLULISINE
     Indication: TYPE 1 DIABETES MELLITUS
     Dosage: UNK UNK,QID
     Route: 058
     Dates: start: 20110301
  2. LANTUS [Suspect]
     Active Substance: INSULIN GLARGINE
     Dosage: 15 U, EVERY PM
     Route: 065
  3. LANTUS [Suspect]
     Active Substance: INSULIN GLARGINE
     Indication: TYPE 1 DIABETES MELLITUS
     Dosage: 8 DF,QD
     Route: 058
     Dates: start: 201002
  4. NOVOLOG [Concomitant]
     Active Substance: INSULIN ASPART
     Dosage: UNK
  5. LISINOPRIL. [Concomitant]
     Active Substance: LISINOPRIL
     Route: 065

REACTIONS (9)
  - Diabetes mellitus inadequate control [Unknown]
  - Blood glucose abnormal [Unknown]
  - Blood glucose increased [Not Recovered/Not Resolved]
  - Product preparation error [Unknown]
  - Wrong technique in product usage process [Unknown]
  - Product quality issue [Not Recovered/Not Resolved]
  - Blood glucose decreased [Unknown]
  - Injection site atrophy [Not Recovered/Not Resolved]
  - Therapeutic response decreased [Unknown]
